FAERS Safety Report 4503016-X (Version None)
Quarter: 2004Q4

REPORT INFORMATION
  Report Type: 
  Country: None (occurrence: None)
  Receive Date: 20041117
  Receipt Date: 20041112
  Transmission Date: 20050328
  Serious: Yes (Hospitalization)
  Sender: FDA-Public Use
  Company Number: PHBS2004CH15298

PATIENT
  Age: 36 Year
  Sex: Male
  Weight: 78 kg

DRUGS (1)
  1. RITALIN [Suspect]
     Dosage: 40 MG, ONCE/SINGLE
     Route: 013

REACTIONS (16)
  - ARTERIAL OCCLUSIVE DISEASE [None]
  - BLOOD CREATINE PHOSPHOKINASE INCREASED [None]
  - C-REACTIVE PROTEIN INCREASED [None]
  - FINGER AMPUTATION [None]
  - HYPOAESTHESIA [None]
  - LIVEDO RETICULARIS [None]
  - LIVIDITY [None]
  - MEDICATION ERROR [None]
  - MOBILITY DECREASED [None]
  - NECROSIS [None]
  - OEDEMA PERIPHERAL [None]
  - PAIN IN EXTREMITY [None]
  - PALLOR [None]
  - PERIPHERAL COLDNESS [None]
  - PERIPHERAL ISCHAEMIA [None]
  - WHITE BLOOD CELL COUNT INCREASED [None]
